FAERS Safety Report 19304456 (Version 1)
Quarter: 2021Q2

REPORT INFORMATION
  Report Type: Report from Study
  Country: ZA (occurrence: ZA)
  Receive Date: 20210526
  Receipt Date: 20210526
  Transmission Date: 20210717
  Serious: Yes (Congenital Anomaly)
  Sender: FDA-Public Use
  Company Number: ZA-AUROBINDO-AUR-APL-2021-020996

PATIENT
  Sex: Female
  Weight: 2.94 kg

DRUGS (2)
  1. DOLUTEGRAVIR [Suspect]
     Active Substance: DOLUTEGRAVIR
     Indication: PRODUCT USED FOR UNKNOWN INDICATION
     Dosage: 50 DAILY DOSE
     Route: 064
  2. EMTRICITABINE AND TENOFOVIR [Suspect]
     Active Substance: EMTRICITABINE\TENOFOVIR
     Indication: PRODUCT USED FOR UNKNOWN INDICATION
     Dosage: 500 (DAILY DOSE)
     Route: 064

REACTIONS (2)
  - Foetal exposure during pregnancy [Unknown]
  - Umbilical hernia [Unknown]
